FAERS Safety Report 4571467-3 (Version None)
Quarter: 2005Q1

REPORT INFORMATION
  Report Type: 
  Country: None (occurrence: None)
  Receive Date: 20050118
  Receipt Date: 20041115
  Transmission Date: 20050727
  Serious: Yes (Hospitalization, Other)
  Sender: FDA-Public Use
  Company Number: HQ4280018SEP2002

PATIENT
  Age: 65 Year
  Sex: Female

DRUGS (4)
  1. PREMPRO [Suspect]
  2. ATROVENT [Concomitant]
  3. SINGULAIR [Concomitant]
  4. DIAZEPAM [Concomitant]

REACTIONS (1)
  - BREAST CANCER FEMALE [None]
